FAERS Safety Report 8467431-4 (Version None)
Quarter: 2012Q2

REPORT INFORMATION
  Report Type: 
  Country: None (occurrence: None)
  Receive Date: 20120626
  Receipt Date: 20120403
  Transmission Date: 20120825
  Serious: Yes (Other)
  Sender: FDA-Public Use
  Company Number: US-ASTRAZENECA-2011SE36122

PATIENT
  Age: 39 Year
  Sex: Male
  Weight: 64.9 kg

DRUGS (13)
  1. CALCIUM+D [Concomitant]
     Dosage: 600-200G DAILY
     Route: 048
  2. FLUDROCORTISONE ACETATE [Concomitant]
     Route: 048
  3. CAPRELSA [Suspect]
     Route: 048
  4. CETIRIZINE HCL [Concomitant]
     Route: 048
  5. LABETALOL HCL [Concomitant]
     Route: 048
  6. CALCITRIOL [Concomitant]
     Route: 048
  7. CAPRELSA [Suspect]
     Indication: THYROID CANCER
     Route: 048
     Dates: start: 20110703, end: 20110701
  8. HYDROMORPHONE HCL [Concomitant]
     Indication: DIARRHOEA
     Route: 048
  9. LEVOTHYROXINE SODIUM [Concomitant]
     Route: 048
  10. LOMOTIL [Concomitant]
     Dosage: 0.025-25 MG PRN
     Route: 048
  11. PROCHLORPERAZINE MALEATE [Concomitant]
     Route: 048
  12. CAPRELSA [Suspect]
     Route: 048
     Dates: start: 20110901
  13. CORTISONE ACETATE [Concomitant]
     Route: 048

REACTIONS (20)
  - NECK PAIN [None]
  - ACNE [None]
  - SENSITIVITY OF TEETH [None]
  - BRADYPHRENIA [None]
  - HOT FLUSH [None]
  - ELECTROLYTE IMBALANCE [None]
  - ELECTROCARDIOGRAM QT PROLONGED [None]
  - BLADDER DISORDER [None]
  - SKIN LESION [None]
  - DERMATITIS ACNEIFORM [None]
  - HYPERTENSION [None]
  - FATIGUE [None]
  - DECREASED APPETITE [None]
  - INSOMNIA [None]
  - HEPATIC ENZYME ABNORMAL [None]
  - MUSCULOSKELETAL STIFFNESS [None]
  - DIVERTICULITIS [None]
  - RASH [None]
  - DIARRHOEA [None]
  - NAUSEA [None]
